FAERS Safety Report 12618659 (Version 2)
Quarter: 2016Q3

REPORT INFORMATION
  Report Type: Report from Study
  Country: NL (occurrence: NL)
  Receive Date: 20160803
  Receipt Date: 20160927
  Transmission Date: 20161109
  Serious: Yes (Hospitalization)
  Sender: FDA-Public Use
  Company Number: NL-VERTEX PHARMACEUTICALS-2016-004611

PATIENT
  Age: 22 Year
  Sex: Male
  Weight: 50 kg

DRUGS (15)
  1. CREON FORTE [Concomitant]
  2. PULMOZYME [Concomitant]
     Active Substance: DORNASE ALFA
  3. AZITROMYCINE [Concomitant]
  4. FOSTER [Concomitant]
     Active Substance: BECLOMETHASONE\FORMOTEROL
  5. OMEPRAZOLE. [Concomitant]
     Active Substance: OMEPRAZOLE
  6. COMBIVENT [Concomitant]
     Active Substance: ALBUTEROL SULFATE\IPRATROPIUM BROMIDE
  7. DEVARON [Concomitant]
  8. VENTOLIN [Concomitant]
     Active Substance: ALBUTEROL SULFATE
  9. CACIT [Concomitant]
     Active Substance: CALCIUM\VITAMIN D
  10. OXAZEPAM. [Concomitant]
     Active Substance: OXAZEPAM
  11. TOBI [Concomitant]
     Active Substance: TOBRAMYCIN
  12. VITAMIN E [Concomitant]
     Active Substance: .ALPHA.-TOCOPHEROL
  13. FYTOMENADION [Concomitant]
  14. TEMAZEPAM. [Concomitant]
     Active Substance: TEMAZEPAM
  15. ORKAMBI [Suspect]
     Active Substance: IVACAFTOR\LUMACAFTOR
     Indication: CYSTIC FIBROSIS
     Dosage: 2 DF, BID
     Route: 048
     Dates: start: 20160413

REACTIONS (1)
  - Infective pulmonary exacerbation of cystic fibrosis [Recovered/Resolved]

NARRATIVE: CASE EVENT DATE: 20160418
